FAERS Safety Report 11757459 (Version 1)
Quarter: 2015Q4

REPORT INFORMATION
  Report Type: Spontaneous
  Country: PT (occurrence: PT)
  Receive Date: 20151120
  Receipt Date: 20151120
  Transmission Date: 20160304
  Serious: Yes (Other)
  Sender: FDA-Public Use
  Company Number: PT-ACTAVIS-2015-25057

PATIENT
  Age: 72 Year
  Sex: Male

DRUGS (10)
  1. ATROPINE. [Concomitant]
     Active Substance: ATROPINE
     Indication: ANAESTHESIA
     Dosage: UNK
     Route: 065
  2. LIDOCAINE. [Concomitant]
     Active Substance: LIDOCAINE
     Indication: ANAESTHESIA
     Dosage: UNK
     Route: 065
  3. CEFAZOLIN [Concomitant]
     Active Substance: CEFAZOLIN
     Indication: ANAESTHESIA
     Dosage: UNK
     Route: 065
  4. PROPOFOL. [Concomitant]
     Active Substance: PROPOFOL
     Indication: ANAESTHESIA
     Dosage: UNK
     Route: 065
  5. PARACETAMOL [Concomitant]
     Active Substance: ACETAMINOPHEN
     Indication: ANAESTHESIA
     Dosage: UNK
     Route: 065
  6. ROCURONIUM [Concomitant]
     Active Substance: ROCURONIUM BROMIDE
     Indication: ANAESTHESIA
     Dosage: UNK
     Route: 065
  7. FENTANYL. [Concomitant]
     Active Substance: FENTANYL
     Indication: ANAESTHESIA
     Dosage: UNK
     Route: 065
  8. MORPHINE (UNKNOWN) [Suspect]
     Active Substance: MORPHINE
     Dosage: UNK
     Route: 003
  9. DROPERIDOL. [Concomitant]
     Active Substance: DROPERIDOL
     Indication: ANAESTHESIA
     Dosage: UNK
     Route: 065
  10. MORPHINE (UNKNOWN) [Suspect]
     Active Substance: MORPHINE
     Indication: ANAESTHESIA
     Dosage: UNK
     Route: 065

REACTIONS (1)
  - Drug hypersensitivity [Recovered/Resolved]
